FAERS Safety Report 8954860 (Version 1)
Quarter: 2012Q4

REPORT INFORMATION
  Report Type: 
  Country: JP (occurrence: JP)
  Receive Date: 20121207
  Receipt Date: 20121207
  Transmission Date: 20130627
  Serious: Yes (Other)
  Sender: FDA-Public Use
  Company Number: PHHY2012JP112268

PATIENT
  Sex: Female

DRUGS (7)
  1. RITODRINE [Suspect]
     Indication: THREATENED LABOUR
     Dosage: 50 ug per min
     Route: 041
  2. RITODRINE [Suspect]
     Dosage: 100 ug per min
     Route: 041
  3. RITODRINE [Suspect]
     Dosage: 150 ug per min
     Route: 041
  4. RITODRINE [Suspect]
     Dosage: (dose was reduced which was unspecified)
     Route: 041
  5. RITODRINE [Suspect]
     Dosage: 100 ug per min
     Route: 041
  6. AMPICILLIN [Suspect]
     Indication: INTRAUTERINE INFECTION
     Route: 042
  7. MAGNESIUM OXIDE [Suspect]
     Indication: CONSTIPATION
     Route: 048

REACTIONS (6)
  - Hot flush [Recovering/Resolving]
  - Salivary gland enlargement [Recovering/Resolving]
  - Palpitations [Recovering/Resolving]
  - Dysphagia [Recovering/Resolving]
  - Oropharyngeal discomfort [Recovered/Resolved]
  - Exposure during pregnancy [Unknown]
